FAERS Safety Report 11732189 (Version 1)
Quarter: 2015Q4

REPORT INFORMATION
  Report Type: Spontaneous
  Country: US (occurrence: US)
  Receive Date: 20151110
  Receipt Date: 20151110
  Transmission Date: 20160304
  Serious: No
  Sender: FDA-Public Use
  Company Number: US-ELI_LILLY_AND_COMPANY-US201202006667

PATIENT
  Sex: Female

DRUGS (3)
  1. FORTEO [Suspect]
     Active Substance: TERIPARATIDE
     Dosage: 20 UG, QD
     Route: 065
  2. FORTEO [Suspect]
     Active Substance: TERIPARATIDE
     Indication: OSTEOPOROSIS
     Dosage: 20 UG, QD
     Route: 065
     Dates: start: 20120210
  3. FORTEO [Suspect]
     Active Substance: TERIPARATIDE
     Dosage: 20 UG, QD
     Route: 065
     Dates: end: 20120326

REACTIONS (10)
  - Dry skin [Not Recovered/Not Resolved]
  - Arthralgia [Unknown]
  - Alopecia [Not Recovered/Not Resolved]
  - Skin exfoliation [Unknown]
  - Carpal tunnel syndrome [Unknown]
  - Myalgia [Recovered/Resolved]
  - Pain in extremity [Not Recovered/Not Resolved]
  - Adverse drug reaction [Unknown]
  - Arthritis [Unknown]
  - Pruritus [Unknown]
